FAERS Safety Report 7500355-5 (Version None)
Quarter: 2011Q2

REPORT INFORMATION
  Report Type: 
  Country: None (occurrence: None)
  Receive Date: 20110524
  Receipt Date: 20110520
  Transmission Date: 20111010
  Serious: Yes (Death)
  Sender: FDA-Public Use
  Company Number: FR-ASTRAZENECA-2011SE30699

PATIENT
  Age: 51 Year
  Sex: Male

DRUGS (6)
  1. ACETAMINOPHEN AND TRAMADOL HCL [Concomitant]
  2. DIPRIVAN [Suspect]
     Route: 042
     Dates: start: 20110324, end: 20110324
  3. DIPRIVAN [Suspect]
     Route: 042
     Dates: start: 20110324, end: 20110324
  4. RAPIFEN [Suspect]
     Route: 042
     Dates: start: 20110324, end: 20110324
  5. VOLTAREN [Concomitant]
  6. CELOCURINE [Suspect]
     Route: 042
     Dates: start: 20110324, end: 20110324

REACTIONS (3)
  - ANAPHYLACTIC SHOCK [None]
  - BRONCHOSPASM [None]
  - CARDIAC ARREST [None]
